FAERS Safety Report 6745171-7 (Version None)
Quarter: 2010Q2

REPORT INFORMATION
  Report Type: 
  Country: None (occurrence: None)
  Receive Date: 20100526
  Receipt Date: 20100511
  Transmission Date: 20101027
  Serious: Yes (Death)
  Sender: FDA-Public Use
  Company Number: AE 2010-083

PATIENT
  Age: 59 Year
  Sex: Male

DRUGS (1)
  1. FAZACLO ODT [Suspect]
     Dosage: 500MG DAILY PO
     Route: 048
     Dates: start: 20060922, end: 20100319

REACTIONS (3)
  - DISEASE COMPLICATION [None]
  - HEPATIC CIRRHOSIS [None]
  - HEPATIC FAILURE [None]
